FAERS Safety Report 13137813 (Version 1)
Quarter: 2017Q1

REPORT INFORMATION
  Report Type: Spontaneous
  Country: JP (occurrence: JP)
  Receive Date: 20170123
  Receipt Date: 20170123
  Transmission Date: 20170428
  Serious: Yes (Death, Hospitalization, Other)
  Sender: FDA-Public Use
  Company Number: JP-APOPHARMA USA, INC.-2017AP005939

PATIENT
  Age: 53 Year
  Sex: Female

DRUGS (9)
  1. MYCOPHENOLATE MOFETIL. [Concomitant]
     Active Substance: MYCOPHENOLATE MOFETIL
     Indication: PROPHYLAXIS AGAINST GRAFT VERSUS HOST DISEASE
     Dosage: 15 MG/KG, QD
     Route: 065
  2. ALKERAN [Suspect]
     Active Substance: MELPHALAN
     Indication: TRANSPLANT
  3. ATG                                /00575402/ [Concomitant]
     Active Substance: LAPINE T-LYMPHOCYTE IMMUNE GLOBULIN
     Indication: TRANSPLANT
     Dosage: 1.25 MG/KG, QD
     Route: 065
  4. ALKERAN [Suspect]
     Active Substance: MELPHALAN
     Indication: ACUTE LYMPHOCYTIC LEUKAEMIA
     Dosage: 70 MG/M2, QD
     Route: 065
  5. FLUDARABINE [Concomitant]
     Active Substance: FLUDARABINE PHOSPHATE
     Indication: TRANSPLANT
     Dosage: 30 MG/M2, QD
     Route: 065
  6. METHYLPREDNISOLONE. [Concomitant]
     Active Substance: METHYLPREDNISOLONE
     Indication: PROPHYLAXIS AGAINST GRAFT VERSUS HOST DISEASE
     Dosage: 1 MG/KG, QD
     Route: 065
  7. TACROLIMUS. [Concomitant]
     Active Substance: TACROLIMUS
     Indication: PROPHYLAXIS AGAINST GRAFT VERSUS HOST DISEASE
     Dosage: UNK, OTHER
     Route: 065
  8. METHYLPREDNISOLONE. [Concomitant]
     Active Substance: METHYLPREDNISOLONE
     Indication: ANAPHYLAXIS PROPHYLAXIS
     Dosage: 2 MG/KG, OTHER
     Route: 065
  9. CYTARABINE. [Concomitant]
     Active Substance: CYTARABINE
     Indication: TUMOUR COMPRESSION
     Dosage: 2 G, OTHER
     Route: 065

REACTIONS (12)
  - Cytomegalovirus infection [Unknown]
  - Pyrexia [Unknown]
  - Chronic kidney disease [Unknown]
  - Leukaemia recurrent [Not Recovered/Not Resolved]
  - Diarrhoea [Unknown]
  - Leukoencephalopathy [Unknown]
  - Neuropathy peripheral [Unknown]
  - Graft versus host disease in gastrointestinal tract [Recovered/Resolved]
  - Respiratory failure [Fatal]
  - Graft versus host disease in liver [Recovered/Resolved]
  - Loss of consciousness [Not Recovered/Not Resolved]
  - Cerebral haemorrhage [Unknown]
